FAERS Safety Report 5508963-8 (Version None)
Quarter: 2007Q4

REPORT INFORMATION
  Report Type: 
  Country: None (occurrence: None)
  Receive Date: 20071031
  Receipt Date: 20070813
  Transmission Date: 20080405
  Serious: No
  Sender: FDA-Public Use
  Company Number: 2007PV033286

PATIENT
  Age: 40 Year
  Sex: Female

DRUGS (5)
  1. SYMLIN [Suspect]
     Indication: TYPE 1 DIABETES MELLITUS
     Dosage: 30 MCG; TID; SC, 18 MCG; TID; SC
     Route: 058
     Dates: start: 20070701, end: 20070701
  2. SYMLIN [Suspect]
     Indication: TYPE 1 DIABETES MELLITUS
     Dosage: 30 MCG; TID; SC, 18 MCG; TID; SC
     Route: 058
     Dates: start: 20070701
  3. HUMALOG [Concomitant]
  4. ENALAPRIL [Concomitant]
  5. THYROID MEDICINE [Concomitant]

REACTIONS (3)
  - BLOOD GLUCOSE INCREASED [None]
  - DIARRHOEA [None]
  - NAUSEA [None]
